FAERS Safety Report 13073494 (Version 1)
Quarter: 2016Q4

REPORT INFORMATION
  Report Type: Report from Study
  Country: DE (occurrence: DE)
  Receive Date: 20161229
  Receipt Date: 20161229
  Transmission Date: 20170207
  Serious: Yes (Hospitalization)
  Sender: FDA-Public Use
  Company Number: DE-TEVA-722828GER

PATIENT
  Age: 66 Year
  Sex: Male

DRUGS (17)
  1. DOXORUBICIN [Suspect]
     Active Substance: DOXORUBICIN
     Indication: NON-HODGKIN^S LYMPHOMA
     Dosage: LAST DOSE PRIOR TO SAE: 08-MAR-2012
     Route: 042
     Dates: start: 20111124, end: 20120308
  2. VINCRISTINE [Suspect]
     Active Substance: VINCRISTINE
     Indication: NON-HODGKIN^S LYMPHOMA
     Dosage: LAST DOSE PRIOR TO SAE: 08-MAR-2012
     Route: 040
     Dates: start: 20111124, end: 20120308
  3. CYCLOPHOSPHAMIDE. [Suspect]
     Active Substance: CYCLOPHOSPHAMIDE
     Indication: NON-HODGKIN^S LYMPHOMA
     Dosage: LAST DOSE PRIOR TO SAE: 08-MAR-2012
     Route: 042
     Dates: start: 20111124, end: 20120308
  4. BIOGRASTIM [Concomitant]
     Indication: LEUKOPENIA
  5. BIOGRASTIM [Concomitant]
     Indication: PYREXIA
  6. ACICLOVIR [Concomitant]
     Active Substance: ACYCLOVIR
     Indication: HERPES ZOSTER
     Dates: start: 20130222
  7. PARACETAMOL [Concomitant]
     Active Substance: ACETAMINOPHEN
     Indication: PROPHYLAXIS
  8. METOCLOPRAMIDE. [Concomitant]
     Active Substance: METOCLOPRAMIDE
     Indication: VOMITING
     Dates: start: 20111215
  9. NOVALGIN [Concomitant]
     Active Substance: METAMIZOLE SODIUM
     Indication: INFECTION PROPHYLAXIS
     Dates: start: 20120313
  10. ANAESTHESULF [Concomitant]
     Indication: HERPES ZOSTER
     Dates: start: 20130215
  11. PREDNISONE. [Suspect]
     Active Substance: PREDNISONE
     Indication: NON-HODGKIN^S LYMPHOMA
     Dosage: LAST DOSE PRIOR TO SAE: 12-MAR-2012
     Route: 048
     Dates: start: 20111124, end: 20120312
  12. RANITIDIN [Concomitant]
     Active Substance: RANITIDINE HYDROCHLORIDE
     Indication: PROPHYLAXIS
  13. BIFITERAL [Concomitant]
     Active Substance: LACTULOSE
     Indication: CONSTIPATION
     Dates: start: 20120319
  14. PANTOPRAZOL [Concomitant]
     Active Substance: PANTOPRAZOLE SODIUM
     Indication: PROPHYLAXIS
     Dates: start: 20111215
  15. RITUXIMAB [Suspect]
     Active Substance: RITUXIMAB
     Indication: NON-HODGKIN^S LYMPHOMA
     Dosage: LAST DOSE PRIOR TO SAE: 29-MAR-2012
     Route: 042
     Dates: start: 20111124
  16. BIOGRASTIM [Concomitant]
     Indication: NEUTROPENIA
     Dosage: ONGOING
     Dates: start: 20120308
  17. FENISTIL [Concomitant]
     Active Substance: DIMETHINDENE
     Indication: HERPES ZOSTER
     Dates: start: 20130215

REACTIONS (1)
  - Compression fracture [Recovered/Resolved]

NARRATIVE: CASE EVENT DATE: 20120414
